FAERS Safety Report 25042698 (Version 1)
Quarter: 2025Q1

REPORT INFORMATION
  Report Type: Spontaneous
  Country: US (occurrence: US)
  Receive Date: 20250305
  Receipt Date: 20250305
  Transmission Date: 20250408
  Serious: No
  Sender: PFIZER
  Company Number: US-PFIZER INC-202500048276

PATIENT
  Age: 4 Decade
  Sex: Male

DRUGS (2)
  1. RITLECITINIB [Suspect]
     Active Substance: RITLECITINIB
     Indication: Alopecia areata
     Dosage: 50 MG, 1X/DAY  (STOPPED)
  2. RITLECITINIB [Suspect]
     Active Substance: RITLECITINIB
     Dosage: 50 MG, 1X/DAY

REACTIONS (1)
  - Therapeutic product effect incomplete [Unknown]
